FAERS Safety Report 5921618-0 (Version None)
Quarter: 2008Q4

REPORT INFORMATION
  Report Type: 
  Country: None (occurrence: None)
  Receive Date: 20081016
  Receipt Date: 20081016
  Transmission Date: 20090506
  Serious: Yes (Death)
  Sender: FDA-Public Use
  Company Number: None

PATIENT
  Sex: Female
  Weight: 76.6579 kg

DRUGS (19)
  1. ZOLEDRONIC ACID [Suspect]
     Indication: PROPHYLAXIS
     Dosage: ONE TIME INFUSION
     Dates: start: 20070509
  2. ZOLEDRONIC ACID [Suspect]
     Indication: RESORPTION BONE INCREASED
     Dosage: ONE TIME INFUSION
     Dates: start: 20070509
  3. ALENDRONATE SODIUM [Suspect]
     Indication: PROPHYLAXIS
     Dosage: WEEKLY CAPSULE PO
     Route: 048
     Dates: start: 20070510, end: 20070716
  4. ALENDRONATE SODIUM [Suspect]
     Indication: RESORPTION BONE INCREASED
     Dosage: WEEKLY CAPSULE PO
     Route: 048
     Dates: start: 20070510, end: 20070716
  5. FLUCONAZOLE [Concomitant]
  6. TACROLIMUS [Concomitant]
  7. PREDNISONE TAB [Concomitant]
  8. NEUPOGEN [Concomitant]
  9. MAGNESIUM OXIDE [Concomitant]
  10. CELEXA [Concomitant]
  11. FERROUS GLUCONATE [Concomitant]
  12. ASPIRIN [Concomitant]
  13. CALCIUM CITRATE [Concomitant]
  14. PRAVASTATIN [Concomitant]
  15. MULTI-VITAMIN [Concomitant]
  16. SENNA/COLACE [Concomitant]
  17. TYLENOL [Concomitant]
  18. AMBIEN [Concomitant]
  19. HEPARIN [Concomitant]

REACTIONS (2)
  - CARDIAC ARREST [None]
  - TRANSPLANT REJECTION [None]
